FAERS Safety Report 9738563 (Version 1)
Quarter: 2013Q4

REPORT INFORMATION
  Report Type: Spontaneous
  Country: US (occurrence: US)
  Receive Date: 20131209
  Receipt Date: 20131209
  Transmission Date: 20140711
  Serious: Yes (Other)
  Sender: FDA-Public Use
  Company Number: US-AMGEN-USASP2013080113

PATIENT
  Sex: 0

DRUGS (4)
  1. ENBREL [Suspect]
     Indication: RHEUMATOID ARTHRITIS
     Dosage: 25 MG, 2 TIMES/WK
     Route: 065
     Dates: start: 201206, end: 201301
  2. SYMBICORT [Suspect]
     Indication: PRODUCT USED FOR UNKNOWN INDICATION
     Dosage: UNK
     Route: 065
  3. PREDNISONE [Concomitant]
     Indication: LUNG DISORDER
     Dosage: 10 MG, UNK
  4. PREDNISONE [Concomitant]
     Dosage: 20 MG, UNK

REACTIONS (21)
  - Pulmonary embolism [Unknown]
  - Sinus tachycardia [Unknown]
  - Palpitations [Unknown]
  - Dyspnoea [Unknown]
  - Chest discomfort [Unknown]
  - Throat tightness [Unknown]
  - Discomfort [Unknown]
  - Feeling abnormal [Unknown]
  - Sleep disorder due to a general medical condition [Unknown]
  - Disturbance in attention [Unknown]
  - Impaired healing [Unknown]
  - Pruritus [Unknown]
  - Cough [Unknown]
  - Red blood cell sedimentation rate increased [Unknown]
  - C-reactive protein abnormal [Unknown]
  - Rheumatoid factor increased [Unknown]
  - Drug effect incomplete [Unknown]
  - Speech disorder [Unknown]
  - Lung disorder [Unknown]
  - Injection site reaction [Unknown]
  - Injection site pain [Unknown]
